FAERS Safety Report 12045907 (Version 2)
Quarter: 2016Q1

REPORT INFORMATION
  Report Type: Report from Study
  Country: US (occurrence: US)
  Receive Date: 20160208
  Receipt Date: 20160311
  Transmission Date: 20160526
  Serious: No
  Sender: FDA-Public Use
  Company Number: US-AMGEN-USASL2016013946

PATIENT
  Age: 54 Year
  Sex: Female
  Weight: 61.22 kg

DRUGS (3)
  1. METHOTREXATE [Concomitant]
     Active Substance: METHOTREXATE
     Dosage: UNK
  2. ENBREL [Suspect]
     Active Substance: ETANERCEPT
     Indication: RHEUMATOID ARTHRITIS
     Dosage: 50 MG, QWK
     Route: 065
     Dates: start: 201508
  3. ENBREL [Suspect]
     Active Substance: ETANERCEPT
     Indication: ANTINUCLEAR ANTIBODY POSITIVE

REACTIONS (6)
  - Musculoskeletal chest pain [Unknown]
  - Pulmonary pain [Recovering/Resolving]
  - Cough [Unknown]
  - Sneezing [Unknown]
  - Fatigue [Unknown]
  - Respiratory tract inflammation [Recovering/Resolving]
